FAERS Safety Report 4267524-1 (Version None)
Quarter: 2004Q1

REPORT INFORMATION
  Report Type: 
  Country: None (occurrence: None)
  Receive Date: 20040109
  Receipt Date: 20030808
  Transmission Date: 20041129
  Serious: No
  Sender: FDA-Public Use
  Company Number: US-GLAXOSMITHKLINE-A0420194A

PATIENT
  Age: 45 Year
  Sex: Female

DRUGS (1)
  1. WELLBUTRIN [Suspect]
     Indication: DEPRESSION
     Dosage: 150TAB FOUR TIMES PER DAY
     Route: 048
     Dates: start: 20030714, end: 20030729

REACTIONS (1)
  - RASH [None]
